FAERS Safety Report 6657065-6 (Version None)
Quarter: 2010Q1

REPORT INFORMATION
  Report Type: 
  Country: None (occurrence: None)
  Receive Date: 20100330
  Receipt Date: 20100326
  Transmission Date: 20100710
  Serious: Yes (Death, Hospitalization)
  Sender: FDA-Public Use
  Company Number: FR-WYE-H13095110

PATIENT
  Age: 84 Year
  Sex: Female

DRUGS (12)
  1. INIPOMP [Suspect]
     Dosage: UNSPECIFIED
     Route: 048
     Dates: end: 20091101
  2. PROTELOS [Suspect]
     Dosage: 2 GM FREQUENCY UNSPECIFIED
     Route: 048
     Dates: start: 20090701, end: 20091115
  3. METOJECT [Suspect]
     Indication: RHEUMATOID ARTHRITIS
     Route: 058
     Dates: start: 20061001, end: 20091101
  4. CORTANCYL [Suspect]
     Indication: RHEUMATOID ARTHRITIS
     Dosage: 5 MG FREQUENCY UNSPECIFIED
     Route: 048
     Dates: start: 20061001, end: 20091206
  5. IXPRIM [Suspect]
     Dosage: UNSPECIFIED
     Route: 048
     Dates: end: 20091101
  6. VITAMIN D3 [Suspect]
     Dosage: UNSPECIFIED
     Route: 048
     Dates: end: 20091206
  7. ATENOLOL [Suspect]
     Dosage: UNSPECIFIED
     Dates: end: 20091206
  8. IPERTEN [Suspect]
     Dosage: 10 MG
     Route: 048
     Dates: end: 20091101
  9. KARDEGIC [Suspect]
     Dosage: 160 MG FREQUENCY UNSPECIFIED
     Route: 048
     Dates: end: 20091206
  10. SPECIAFOLDINE [Suspect]
     Dosage: UNSPECIFIED
     Route: 048
     Dates: end: 20091101
  11. HUMIRA [Suspect]
     Route: 058
     Dates: start: 20081001, end: 20091101
  12. CALCIUM ACETATE [Suspect]
     Dosage: UNSPECIFIED
     Route: 048
     Dates: end: 20091206

REACTIONS (5)
  - DEEP VEIN THROMBOSIS [None]
  - PLEURAL EFFUSION [None]
  - PULMONARY EMBOLISM [None]
  - PYREXIA [None]
  - TUBERCULOSIS [None]
